FAERS Safety Report 7996627-0 (Version None)
Quarter: 2011Q4

REPORT INFORMATION
  Report Type: 
  Country: None (occurrence: None)
  Receive Date: 20111221
  Receipt Date: 20111209
  Transmission Date: 20120403
  Serious: Yes (Other)
  Sender: FDA-Public Use
  Company Number: SE-AMGEN-SWESP2011066845

PATIENT
  Age: 55 Year
  Sex: Female

DRUGS (1)
  1. ENBREL [Suspect]
     Indication: PSORIATIC ARTHROPATHY
     Dosage: WEEKLY
     Dates: start: 20111122, end: 20111206

REACTIONS (10)
  - NERVOUSNESS [None]
  - PARAESTHESIA [None]
  - FEELING HOT [None]
  - FATIGUE [None]
  - JOINT INJURY [None]
  - SENSATION OF HEAVINESS [None]
  - FALL [None]
  - DYSPNOEA [None]
  - SWOLLEN TONGUE [None]
  - HYPERSENSITIVITY [None]
